FAERS Safety Report 24573723 (Version 1)
Quarter: 2024Q4

REPORT INFORMATION
  Report Type: Spontaneous
  Country: CN (occurrence: CN)
  Receive Date: 20241103
  Receipt Date: 20241103
  Transmission Date: 20250115
  Serious: Yes (Hospitalization, Other)
  Sender: MERCK
  Company Number: CN-009507513-2410CHN013798

PATIENT
  Age: 52 Year
  Sex: Male
  Weight: 65.5 kg

DRUGS (3)
  1. KEYTRUDA [Suspect]
     Active Substance: PEMBROLIZUMAB
     Indication: Hepatocellular carcinoma
     Dosage: STRENGTH: 4ML:100 MG; 200MG, ONCE
     Route: 041
     Dates: start: 20240903, end: 20240903
  2. LENVATINIB MESYLATE [Suspect]
     Active Substance: LENVATINIB MESYLATE
     Indication: Medication dilution
     Dosage: STRENGTH: 4 MG X 30 CAPSULES; 12 MG, ONCE DAILY (QD)
     Route: 048
     Dates: start: 20240903, end: 20241015
  3. SODIUM CHLORIDE [Concomitant]
     Active Substance: SODIUM CHLORIDE
     Indication: Medication dilution
     Dosage: STRENGTH: 100 ML; 100 ML, ONCE
     Route: 041
     Dates: start: 20240903, end: 20240903

REACTIONS (3)
  - White blood cell count decreased [Recovering/Resolving]
  - Neutrophil count decreased [Recovering/Resolving]
  - Product use issue [Unknown]

NARRATIVE: CASE EVENT DATE: 20240903
